FAERS Safety Report 16470681 (Version 1)
Quarter: 2019Q2

REPORT INFORMATION
  Report Type: Spontaneous
  Country: US (occurrence: US)
  Receive Date: 20190624
  Receipt Date: 20190624
  Transmission Date: 20190711
  Serious: No
  Sender: FDA-Public Use
  Company Number: US-CATALYST PHARMACEUTICALS, INC-2019CAT00113

PATIENT
  Age: 67 Year
  Sex: Female
  Weight: 66.67 kg

DRUGS (8)
  1. FIRDAPSE [Suspect]
     Active Substance: AMIFAMPRIDINE
     Dosage: 15 MG, 1X/DAY AT NIGHT
     Route: 048
     Dates: start: 201903
  2. DAILY MULTIVITAMIN [Concomitant]
     Active Substance: VITAMINS
  3. FIRDAPSE [Suspect]
     Active Substance: AMIFAMPRIDINE
     Indication: MYASTHENIC SYNDROME
     Dosage: 10 MG, 3X/DAY
     Route: 048
     Dates: start: 20190313, end: 20190319
  4. FIRDAPSE [Suspect]
     Active Substance: AMIFAMPRIDINE
     Dosage: 15 MG, 3X/DAY (9:00 AM, 3:00 PM, AND 9:00 PM)
     Route: 048
     Dates: start: 20190320, end: 201903
  5. FIRDAPSE [Suspect]
     Active Substance: AMIFAMPRIDINE
     Dosage: 10 MG, 2X/DAY (MORNING AND AFTERNOON)
     Route: 048
     Dates: start: 201903
  6. CALTRATE [Concomitant]
     Active Substance: CALCIUM CARBONATE
  7. DAILY PROBIOTIC [Concomitant]
  8. ACTONEL [Concomitant]
     Active Substance: RISEDRONATE SODIUM

REACTIONS (8)
  - Drug ineffective [Not Recovered/Not Resolved]
  - Nausea [Recovered/Resolved]
  - Product dose omission [Recovered/Resolved]
  - Back pain [Not Recovered/Not Resolved]
  - Pain in extremity [Recovered/Resolved]
  - Therapeutic response increased [Recovered/Resolved]
  - Arthralgia [Recovered/Resolved]
  - Vomiting [Recovered/Resolved]

NARRATIVE: CASE EVENT DATE: 2019
